FAERS Safety Report 16963557 (Version 4)
Quarter: 2020Q1

REPORT INFORMATION
  Report Type: Spontaneous
  Country: US (occurrence: US)
  Receive Date: 20191025
  Receipt Date: 20200130
  Transmission Date: 20200409
  Serious: Yes (Other)
  Sender: FDA-Public Use
  Company Number: US-009507513-1910USA013387

PATIENT
  Age: 69 Year
  Sex: Female

DRUGS (15)
  1. PLAVIX [Concomitant]
     Active Substance: CLOPIDOGREL BISULFATE
     Dosage: UNK
  2. TESSALON [Concomitant]
     Active Substance: BENZONATATE
     Dosage: UNK
  3. ULTRAM [Concomitant]
     Active Substance: TRAMADOL HYDROCHLORIDE
     Dosage: UNK
  4. LYRICA [Concomitant]
     Active Substance: PREGABALIN
     Dosage: UNK
  5. NITROSTAT [Concomitant]
     Active Substance: NITROGLYCERIN
     Dosage: UNK
  6. OXYGEN. [Concomitant]
     Active Substance: OXYGEN
     Dosage: UNK
  7. PROVENTIL [Suspect]
     Active Substance: ALBUTEROL
     Indication: ASTHMA
     Dosage: 2 PUFFS/ EVERY FOUR HOURS AS NEEDED
     Route: 055
  8. RESTORIL (CHLORMEZANONE) [Concomitant]
     Active Substance: CHLORMEZANONE
     Dosage: UNK
  9. ZYRTEC [Concomitant]
     Active Substance: CETIRIZINE HYDROCHLORIDE
     Dosage: UNK
  10. XANAX [Concomitant]
     Active Substance: ALPRAZOLAM
     Dosage: UNK
  11. PROVENTIL [Suspect]
     Active Substance: ALBUTEROL
     Dosage: 2 PUFFS/ EVERY FOUR HOURS AS NEEDED
     Route: 055
  12. LIPITOR [Concomitant]
     Active Substance: ATORVASTATIN CALCIUM
     Dosage: UNK
  13. HYOSCYAMINE. [Concomitant]
     Active Substance: HYOSCYAMINE
     Dosage: UNK
  14. METOPROLOL. [Concomitant]
     Active Substance: METOPROLOL
     Dosage: UNK
  15. ASPIRIN. [Concomitant]
     Active Substance: ASPIRIN
     Dosage: ^ENTERIC^

REACTIONS (4)
  - Poor quality device used [Unknown]
  - Cardiac disorder [Unknown]
  - Product quality issue [Unknown]
  - Blood pressure increased [Recovered/Resolved]

NARRATIVE: CASE EVENT DATE: 20191020
